FAERS Safety Report 6433110-8 (Version None)
Quarter: 2009Q4

REPORT INFORMATION
  Report Type: 
  Country: None (occurrence: None)
  Receive Date: 20091105
  Receipt Date: 20091021
  Transmission Date: 20100525
  Serious: Yes (Hospitalization, Other)
  Sender: FDA-Public Use
  Company Number: AUR-APL-2009-01008

PATIENT
  Age: 40 Year
  Sex: Female

DRUGS (8)
  1. CITALOPRAM HYDROBROMIDE [Suspect]
     Indication: DEPRESSED MOOD
     Dosage: 40MG, ORAL
     Route: 048
  2. CLOZARIL [Suspect]
     Indication: SCHIZOPHRENIA
     Dosage: 350MG, DAILY, ORAL
     Route: 048
     Dates: start: 20000805, end: 20090914
  3. AMITRIPTYLINE HCL [Suspect]
     Indication: MOOD ALTERED
  4. OMEPRAZOLE [Suspect]
     Indication: COLITIS ULCERATIVE
     Dosage: 20MG
  5. PRIADEL [Suspect]
     Indication: AFFECTIVE DISORDER
     Dosage: 800MG - ORAL
     Route: 048
  6. AMITRIPTYLINE HCL [Concomitant]
  7. BALSALAZIDE [Concomitant]
  8. OMEPRAZOLE [Concomitant]

REACTIONS (6)
  - DRUG DOSE OMISSION [None]
  - INTESTINAL OBSTRUCTION [None]
  - NEUTROPHIL COUNT INCREASED [None]
  - PLATELET COUNT INCREASED [None]
  - PULMONARY THROMBOSIS [None]
  - WHITE BLOOD CELL COUNT INCREASED [None]
